FAERS Safety Report 19275737 (Version 1)
Quarter: 2021Q2

REPORT INFORMATION
  Report Type: Report from Study
  Country: US (occurrence: US)
  Receive Date: 20210519
  Receipt Date: 20210519
  Transmission Date: 20210717
  Serious: Yes (Hospitalization, Disabling, Other)
  Sender: FDA-Public Use
  Company Number: US-TAKEDA-2021TUS030328

PATIENT
  Sex: Male

DRUGS (4)
  1. TEDUGLUTIDE [Suspect]
     Active Substance: TEDUGLUTIDE
     Indication: SHORT-BOWEL SYNDROME
     Dosage: 0.5, QD
     Route: 058
     Dates: start: 20140528
  2. TEDUGLUTIDE [Suspect]
     Active Substance: TEDUGLUTIDE
     Indication: SHORT-BOWEL SYNDROME
     Dosage: 0.5, QD
     Route: 058
     Dates: start: 20140528
  3. TEDUGLUTIDE [Suspect]
     Active Substance: TEDUGLUTIDE
     Indication: SHORT-BOWEL SYNDROME
     Dosage: 0.5, QD
     Route: 058
     Dates: start: 20140528
  4. TEDUGLUTIDE [Suspect]
     Active Substance: TEDUGLUTIDE
     Indication: SHORT-BOWEL SYNDROME
     Dosage: 0.5, QD
     Route: 058
     Dates: start: 20140528

REACTIONS (4)
  - Herpes zoster [Recovering/Resolving]
  - Neuropathy peripheral [Recovering/Resolving]
  - Hemiplegia [Recovering/Resolving]
  - Spinal cord infection [Recovering/Resolving]
